FAERS Safety Report 7006838-9 (Version None)
Quarter: 2010Q3

REPORT INFORMATION
  Report Type: 
  Country: None (occurrence: None)
  Receive Date: 20100922
  Receipt Date: 20100913
  Transmission Date: 20110219
  Serious: No
  Sender: FDA-Public Use
  Company Number: US-BIOGENIDEC-2010BI031901

PATIENT
  Sex: Female

DRUGS (2)
  1. AVONEX [Suspect]
     Indication: MULTIPLE SCLEROSIS
     Route: 030
     Dates: start: 19960501
  2. METROASE (NOS) [Concomitant]
     Indication: MULTIPLE SCLEROSIS

REACTIONS (4)
  - DISORIENTATION [None]
  - FEELING ABNORMAL [None]
  - MALAISE [None]
  - MOBILITY DECREASED [None]
